FAERS Safety Report 8247122-5 (Version None)
Quarter: 2012Q1

REPORT INFORMATION
  Report Type: 
  Country: None (occurrence: None)
  Receive Date: 20120330
  Receipt Date: 20120321
  Transmission Date: 20120608
  Serious: Yes (Hospitalization)
  Sender: FDA-Public Use
  Company Number: ES-JNJFOC-20120312393

PATIENT
  Age: 79 Year
  Sex: Male

DRUGS (6)
  1. LORMETAZEPAM [Interacting]
     Indication: PROPHYLAXIS
     Route: 048
     Dates: start: 20100201, end: 20110218
  2. DURAGESIC-100 [Suspect]
     Indication: PAIN
     Route: 062
     Dates: start: 20110110, end: 20110218
  3. OXYCONTIN [Interacting]
     Indication: PAIN
     Route: 048
     Dates: start: 20090201, end: 20110109
  4. NEURONTIN [Concomitant]
     Indication: PAIN
     Route: 048
  5. HALOPERIDOL [Interacting]
     Indication: PROPHYLAXIS
     Route: 048
     Dates: end: 20110218
  6. DIOVAN HCT [Concomitant]
     Indication: HYPERTENSION
     Route: 048
     Dates: start: 20060501

REACTIONS (3)
  - CONFUSIONAL STATE [None]
  - DRUG INTERACTION [None]
  - RESPIRATORY DEPRESSION [None]
